FAERS Safety Report 16821236 (Version 4)
Quarter: 2020Q1

REPORT INFORMATION
  Report Type: Report from Study
  Country: None (occurrence: JP)
  Receive Date: 20190918
  Receipt Date: 20200320
  Transmission Date: 20200409
  Serious: Yes (Other)
  Sender: FDA-Public Use
  Company Number: JP-ABBVIE-19K-087-2929767-00

PATIENT
  Age: 52 Year
  Sex: Female
  Weight: 59 kg

DRUGS (3)
  1. DUODOPA [Suspect]
     Active Substance: CARBIDOPA\LEVODOPA
     Indication: PARKINSON^S DISEASE
     Dosage: MD: 5.3 ML?CD: 1.7 ML/HR ? 16 HRS?ED: 3.0 ML/UNIT ? 3 TIMES
     Route: 050
     Dates: start: 20190604
  2. ROTIGOTINE [Concomitant]
     Active Substance: ROTIGOTINE
     Indication: PARKINSON^S DISEASE
     Route: 062
  3. APOMORPHINE HYDROCHLORIDE HEMIHYDRATE [Concomitant]
     Active Substance: APOMORPHINE HYDROCHLORIDE
     Indication: PARKINSON^S DISEASE
     Dosage: 30 MG ? 0.3 TIMES A DAY
     Route: 058

REACTIONS (7)
  - Oxygen saturation decreased [Recovering/Resolving]
  - Computerised tomogram abnormal [Unknown]
  - Ovarian neoplasm [Unknown]
  - Stoma site extravasation [Unknown]
  - Sedation complication [Unknown]
  - Post procedural complication [Recovering/Resolving]
  - Mobility decreased [Unknown]

NARRATIVE: CASE EVENT DATE: 2019
